FAERS Safety Report 10417136 (Version 1)
Quarter: 2014Q3

REPORT INFORMATION
  Report Type: Spontaneous
  Country: US (occurrence: US)
  Receive Date: 20140828
  Receipt Date: 20140828
  Transmission Date: 20150326
  Serious: No
  Sender: FDA-Public Use
  Company Number: US-ENDO PHARMACEUTICALS INC.-HYDR20130015

PATIENT
  Age: 75 Year
  Sex: Male

DRUGS (2)
  1. HYDROCORTISONE TABLETS 10MG [Suspect]
     Active Substance: HYDROCORTISONE
     Dosage: TAPER
     Route: 048
     Dates: start: 20130909
  2. HYDROCORTISONE TABLETS 10MG [Suspect]
     Active Substance: HYDROCORTISONE
     Indication: BLOOD CORTISOL DECREASED
     Route: 048
     Dates: start: 20130703, end: 20130908

REACTIONS (3)
  - Drug ineffective [Recovered/Resolved]
  - Mental impairment [Recovering/Resolving]
  - Headache [Recovered/Resolved]

NARRATIVE: CASE EVENT DATE: 2013
